FAERS Safety Report 19322311 (Version 3)
Quarter: 2021Q3

REPORT INFORMATION
  Report Type: Report from Study
  Country: US (occurrence: US)
  Receive Date: 20210528
  Receipt Date: 20210722
  Transmission Date: 20211014
  Serious: No
  Sender: FDA-Public Use
  Company Number: NVSC2021US112500

PATIENT
  Sex: Female

DRUGS (1)
  1. KESIMPTA [Suspect]
     Active Substance: OFATUMUMAB
     Indication: MULTIPLE SCLEROSIS
     Dosage: 0.4 ML, QMO
     Route: 058
     Dates: start: 202012, end: 202105

REACTIONS (5)
  - Injection site pain [Unknown]
  - Musculoskeletal disorder [Unknown]
  - Muscle spasticity [Unknown]
  - Injection site bruising [Unknown]
  - Injection site urticaria [Unknown]
